FAERS Safety Report 16414415 (Version 1)
Quarter: 2019Q2

REPORT INFORMATION
  Report Type: Report from Study
  Country: US (occurrence: US)
  Receive Date: 20190611
  Receipt Date: 20190611
  Transmission Date: 20190711
  Serious: Yes (Other)
  Sender: FDA-Public Use
  Company Number: US-ROCHE-2329043

PATIENT
  Age: 59 Year
  Sex: Female
  Weight: 85.35 kg

DRUGS (4)
  1. OCREVUS [Suspect]
     Active Substance: OCRELIZUMAB
     Indication: RELAPSING MULTIPLE SCLEROSIS
     Dosage: ONLY RECEIVED 1 HALF DOSE
     Route: 042
     Dates: start: 2017, end: 2017
  2. GLATIRAMER ACETATE. [Concomitant]
     Active Substance: GLATIRAMER ACETATE
     Route: 065
     Dates: start: 2013, end: 2015
  3. TERIFLUNOMIDE. [Concomitant]
     Active Substance: TERIFLUNOMIDE
     Indication: RELAPSING MULTIPLE SCLEROSIS
     Route: 065
     Dates: start: 2018
  4. OCREVUS [Suspect]
     Active Substance: OCRELIZUMAB
     Dosage: 1ST HALF INFUSION
     Route: 042
     Dates: start: 20190520

REACTIONS (6)
  - Alopecia [Recovered/Resolved]
  - Headache [Not Recovered/Not Resolved]
  - Ear discomfort [Not Recovered/Not Resolved]
  - Weight increased [Not Recovered/Not Resolved]
  - Bronchitis [Recovered/Resolved]
  - Infection [Not Recovered/Not Resolved]

NARRATIVE: CASE EVENT DATE: 201905
